FAERS Safety Report 16646615 (Version 1)
Quarter: 2019Q3

REPORT INFORMATION
  Report Type: Spontaneous
  Country: TR (occurrence: TR)
  Receive Date: 20190730
  Receipt Date: 20190730
  Transmission Date: 20191004
  Serious: Yes (Hospitalization)
  Sender: FDA-Public Use
  Company Number: TR-INDICUS PHARMA-000608

PATIENT
  Age: 74 Year
  Sex: Male

DRUGS (8)
  1. THEOPHYLLINE [Concomitant]
     Active Substance: THEOPHYLLINE ANHYDROUS
  2. TAMSULOSIN [Concomitant]
     Active Substance: TAMSULOSIN
  3. IPRATROPIUM BROMIDE/SALBUTAMOL [Concomitant]
     Dosage: 20/100 MCG
  4. SALBUTAMOL [Concomitant]
     Active Substance: ALBUTEROL
  5. BENIDIPINE [Concomitant]
     Active Substance: BENIDIPINE
     Dosage: 8 MG
  6. METFORMIN [Suspect]
     Active Substance: METFORMIN HYDROCHLORIDE
     Indication: TYPE 2 DIABETES MELLITUS
     Dosage: 1000 MG TWICE A DAY
     Route: 048
  7. BUDESONIDE/FORMOTEROL [Concomitant]
     Dosage: 12/200 MCG,
  8. TIOTROPIUM [Concomitant]
     Active Substance: TIOTROPIUM
     Dosage: 18 MCG

REACTIONS (1)
  - Metabolic acidosis [Recovered/Resolved]
